FAERS Safety Report 14407662 (Version 1)
Quarter: 2018Q1

REPORT INFORMATION
  Report Type: Spontaneous
  Country: FR (occurrence: FR)
  Receive Date: 20180118
  Receipt Date: 20180118
  Transmission Date: 20180509
  Serious: Yes (Other)
  Sender: FDA-Public Use
  Company Number: FR-ALLERGAN-1802726US

PATIENT
  Sex: Female

DRUGS (1)
  1. TRIPTORELIN PAMOATE - BP [Suspect]
     Active Substance: TRIPTORELIN PAMOATE
     Indication: OVULATION INDUCTION
     Dosage: UNK
     Route: 065

REACTIONS (2)
  - Off label use [Unknown]
  - Complication of pregnancy [Unknown]
